FAERS Safety Report 10205869 (Version 1)
Quarter: 2014Q2

REPORT INFORMATION
  Report Type: Spontaneous
  Country: US (occurrence: US)
  Receive Date: 20140530
  Receipt Date: 20140530
  Transmission Date: 20141212
  Serious: Yes (Other)
  Sender: FDA-Public Use
  Company Number: US-BIOGENIDEC-2014BI047433

PATIENT
  Age: 64 Year
  Sex: Female

DRUGS (15)
  1. TECFIDERA [Suspect]
     Indication: MULTIPLE SCLEROSIS
     Route: 048
     Dates: start: 20140312
  2. BENTYL [Concomitant]
  3. BUSPIRONE [Concomitant]
  4. CETIRIZINE [Concomitant]
  5. GLUCOSAMINE [Concomitant]
  6. HYDROXYZINE [Concomitant]
  7. FISH OIL [Concomitant]
  8. LEVOTHYROXINE [Concomitant]
  9. LEXAPRO [Concomitant]
  10. OMEPRAZOLE [Concomitant]
  11. PREMARIN [Concomitant]
  12. TRAZODONE [Concomitant]
  13. VITAMIN C [Concomitant]
  14. VITAMIN D [Concomitant]
  15. ORAP [Concomitant]

REACTIONS (1)
  - Cerebrovascular accident [Unknown]
